FAERS Safety Report 6246959-1 (Version None)
Quarter: 2009Q2

REPORT INFORMATION
  Report Type: 
  Country: None (occurrence: None)
  Receive Date: 20090624
  Receipt Date: 20090624
  Transmission Date: 20091009
  Serious: Yes (Hospitalization)
  Sender: FDA-Public Use
  Company Number: None

PATIENT
  Sex: Female
  Weight: 55.4 kg

DRUGS (1)
  1. TEMOZOLOMIDE [Suspect]
     Indication: ACUTE MYELOID LEUKAEMIA
     Dosage: 200MG/M2 QQ PO
     Route: 048
     Dates: start: 20090529, end: 20090604

REACTIONS (4)
  - COUGH [None]
  - FUNGAL INFECTION [None]
  - LUNG NEOPLASM MALIGNANT [None]
  - PYREXIA [None]
